FAERS Safety Report 9637891 (Version 7)
Quarter: 2014Q2

REPORT INFORMATION
  Report Type: Report from Study
  Country: DE (occurrence: DE)
  Receive Date: 20131022
  Receipt Date: 20140603
  Transmission Date: 20141212
  Serious: Yes (Hospitalization)
  Sender: FDA-Public Use
  Company Number: DE-ASTELLAS-2013EU008768

PATIENT
  Age: 76 Year
  Sex: Female
  Weight: 103 kg

DRUGS (6)
  1. SOLIFENACIN [Suspect]
     Indication: HYPERTONIC BLADDER
     Route: 048
     Dates: start: 20131002, end: 20131112
  2. ENALAPRIL [Concomitant]
     Route: 065
     Dates: start: 1996
  3. ENALAPRIL [Concomitant]
     Route: 065
     Dates: start: 2008
  4. DOXAZOCIN [Concomitant]
     Route: 065
     Dates: start: 1996
  5. AMLODIPINE [Concomitant]
     Route: 065
     Dates: start: 1996
  6. FUROSEMID                          /00032601/ [Concomitant]
     Route: 065
     Dates: start: 201303

REACTIONS (3)
  - Dyspnoea [Recovered/Resolved]
  - Angina pectoris [Recovered/Resolved]
  - General physical health deterioration [Recovered/Resolved]
